FAERS Safety Report 6677690-6 (Version None)
Quarter: 2010Q2

REPORT INFORMATION
  Report Type: 
  Country: None (occurrence: None)
  Receive Date: 20100412
  Receipt Date: 20100225
  Transmission Date: 20101027
  Serious: Yes (Other)
  Sender: FDA-Public Use
  Company Number: US-ALEXION-A201000155

PATIENT
  Sex: Female

DRUGS (8)
  1. SOLIRIS [Suspect]
     Indication: PAROXYSMAL NOCTURNAL HAEMOGLOBINURIA
     Dosage: 280 MG, SINGLE
     Route: 042
     Dates: start: 20071016, end: 20071016
  2. SOLIRIS [Suspect]
     Dosage: 7 ML, SINGLE
     Route: 042
     Dates: start: 20071017, end: 20071017
  3. SOLIRIS [Suspect]
     Dosage: 600 MG, WEEKLY X4
     Route: 042
     Dates: start: 20090803, end: 20090801
  4. SOLIRIS [Suspect]
     Dosage: 900 MG, UNK
     Route: 042
     Dates: start: 20090831
  5. SOTALOL HCL [Concomitant]
     Dosage: 120 MG, BID
     Route: 048
  6. WARFARIN [Concomitant]
     Dosage: 5 MG, QD
     Route: 048
  7. NEURONTIN [Concomitant]
     Dosage: 200 MG, BID
     Route: 048
  8. FOLIC ACID [Concomitant]
     Dosage: 1 MG, QD
     Route: 048

REACTIONS (7)
  - BLOOD LACTATE DEHYDROGENASE INCREASED [None]
  - CHROMATURIA [None]
  - DIARRHOEA [None]
  - HAEMOGLOBIN DECREASED [None]
  - LOSS OF CONSCIOUSNESS [None]
  - NAUSEA [None]
  - VOMITING [None]
